FAERS Safety Report 25261209 (Version 1)
Quarter: 2025Q2

REPORT INFORMATION
  Report Type: Spontaneous
  Country: US (occurrence: US)
  Receive Date: 20250501
  Receipt Date: 20250501
  Transmission Date: 20250716
  Serious: No
  Sender: ALKERMES
  Company Number: US-ALKERMES INC.-ALK-2025-001111

PATIENT
  Sex: Female

DRUGS (2)
  1. VIVITROL [Suspect]
     Active Substance: NALTREXONE
     Indication: Drug dependence
     Route: 030
     Dates: start: 201901
  2. VIVITROL [Suspect]
     Active Substance: NALTREXONE
     Indication: Alcohol abuse

REACTIONS (2)
  - Skin exfoliation [Unknown]
  - Rash [Unknown]
